FAERS Safety Report 4736302-9 (Version None)
Quarter: 2005Q3

REPORT INFORMATION
  Report Type: 
  Country: None (occurrence: None)
  Receive Date: 20050804
  Receipt Date: 20050728
  Transmission Date: 20060218
  Serious: Yes (Hospitalization, Other)
  Sender: FDA-Public Use
  Company Number: 2005104514

PATIENT
  Age: 83 Year
  Sex: Male

DRUGS (2)
  1. NEURONTIN [Suspect]
     Indication: DISCOMFORT
     Dosage: 2400 MG (800 MG, 3 IN 1 D), ORAL
     Route: 048
     Dates: start: 19980101
  2. VITAMINS [Concomitant]

REACTIONS (10)
  - AORTIC CALCIFICATION [None]
  - AORTIC VALVE STENOSIS [None]
  - BLOOD CHOLESTEROL INCREASED [None]
  - CARDIAC DISORDER [None]
  - CAROTID ARTERY OCCLUSION [None]
  - DRUG EFFECT DECREASED [None]
  - EYE DISORDER [None]
  - KNEE ARTHROPLASTY [None]
  - MITRAL VALVE CALCIFICATION [None]
  - TRANSIENT ISCHAEMIC ATTACK [None]
